FAERS Safety Report 5608583-0 (Version None)
Quarter: 2008Q1

REPORT INFORMATION
  Report Type: 
  Country: None (occurrence: None)
  Receive Date: 20080130
  Receipt Date: 20080119
  Transmission Date: 20080703
  Serious: Yes (Hospitalization)
  Sender: FDA-Public Use
  Company Number: FR-PFIZER INC-2008006873

PATIENT
  Sex: Male

DRUGS (5)
  1. ZOLOFT [Suspect]
     Indication: DEPRESSION
     Dosage: DAILY DOSE:50MG
     Dates: start: 20040301, end: 20080118
  2. PLAVIX [Concomitant]
  3. BUFLOMEDIL [Concomitant]
  4. INIPOMP [Concomitant]
  5. KETOPROFEN [Concomitant]

REACTIONS (2)
  - CLUBBING [None]
  - PULMONARY FIBROSIS [None]
